FAERS Safety Report 25645726 (Version 1)
Quarter: 2025Q3

REPORT INFORMATION
  Report Type: Spontaneous
  Country: CN (occurrence: CN)
  Receive Date: 20250805
  Receipt Date: 20250805
  Transmission Date: 20251021
  Serious: Yes (Other)
  Sender: PFIZER
  Company Number: CN-PFIZER INC-PV202500093512

PATIENT
  Age: 51 Year
  Sex: Male
  Weight: 87 kg

DRUGS (1)
  1. ZYVOX [Suspect]
     Active Substance: LINEZOLID
     Indication: Device related infection
     Dosage: 0.6 G, 2X/DAY
     Route: 048
     Dates: start: 20250716, end: 20250725

REACTIONS (5)
  - Hallucination [Unknown]
  - Hallucination, auditory [Unknown]
  - Insomnia [Unknown]
  - Muscle twitching [Unknown]
  - Electric shock sensation [Unknown]

NARRATIVE: CASE EVENT DATE: 20250724
